FAERS Safety Report 19910812 (Version 1)
Quarter: 2021Q4

REPORT INFORMATION
  Report Type: Spontaneous
  Country: KR (occurrence: KR)
  Receive Date: 20211004
  Receipt Date: 20211004
  Transmission Date: 20220303
  Serious: Yes (Other)
  Sender: FDA-Public Use
  Company Number: KR-ROCHE-2923630

PATIENT
  Sex: Male

DRUGS (2)
  1. ALECTINIB [Suspect]
     Active Substance: ALECTINIB
     Indication: Product used for unknown indication
     Route: 065
     Dates: start: 20171123
  2. CRIZOTINIB [Suspect]
     Active Substance: CRIZOTINIB
     Indication: Neuropathy peripheral
     Route: 065
     Dates: start: 20171021, end: 20171105

REACTIONS (1)
  - Metastasis [Unknown]
